FAERS Safety Report 20394450 (Version 1)
Quarter: 2022Q1

REPORT INFORMATION
  Report Type: Spontaneous
  Country: FR (occurrence: FR)
  Receive Date: 20220129
  Receipt Date: 20220129
  Transmission Date: 20220424
  Serious: Yes (Hospitalization, Other)
  Sender: FDA-Public Use
  Company Number: FR-AFSSAPS-AVNY20210963

PATIENT
  Age: 43 Year
  Sex: Female

DRUGS (2)
  1. ALPRAZOLAM [Suspect]
     Active Substance: ALPRAZOLAM
     Indication: Product used for unknown indication
     Dosage: UNK (0.5 MG IN THE MORNING 0.5 MG AT NOON AND 1 MG IN THE EVENING)
     Route: 048
  2. FLUOXETINE [Suspect]
     Active Substance: FLUOXETINE HYDROCHLORIDE
     Indication: Product used for unknown indication
     Dosage: 40 MILLIGRAM, DAILY
     Route: 048

REACTIONS (4)
  - Drug dependence [Recovered/Resolved]
  - Sedation [Unknown]
  - Anhedonia [Unknown]
  - Asthenia [Unknown]

NARRATIVE: CASE EVENT DATE: 20210511
